FAERS Safety Report 20343348 (Version 1)
Quarter: 2022Q1

REPORT INFORMATION
  Report Type: Spontaneous
  Country: EG (occurrence: EG)
  Receive Date: 20220117
  Receipt Date: 20220117
  Transmission Date: 20220423
  Serious: Yes (Other)
  Sender: FDA-Public Use
  Company Number: EG-009507513-2112EGY010105

PATIENT
  Age: 67 Year
  Sex: Female

DRUGS (7)
  1. JANUMET [Suspect]
     Active Substance: METFORMIN HYDROCHLORIDE\SITAGLIPTIN PHOSPHATE
     Indication: Diabetes mellitus
     Dosage: ONCE AT WALK UP TIME, BEFORE FOOD
     Route: 048
  2. CYANOCOBALAMIN\PYRIDOXINE\THIAMINE [Suspect]
     Active Substance: CYANOCOBALAMIN\PYRIDOXINE\THIAMINE
  3. LANTUS [Suspect]
     Active Substance: INSULIN GLARGINE
     Indication: Diabetes mellitus
     Dosage: AT NIGHT, 25 UNITS
     Route: 058
  4. GLIMET [REPAGLINIDE] [Concomitant]
     Indication: Diabetes mellitus
     Dosage: TWICE
     Route: 048
  5. OMEGA-3 FATTY ACIDS [Concomitant]
     Active Substance: OMEGA-3 FATTY ACIDS
     Indication: Vitamin supplementation
     Dosage: 1 TABLET, QD
  6. .ALPHA.-LIPOIC ACID [Concomitant]
     Active Substance: .ALPHA.-LIPOIC ACID
     Indication: Neuropathy peripheral
     Dosage: 1 TABLET DAILY BEFORE BREAKFAST
     Route: 048
  7. CONCOR 5 PLUS [Concomitant]
     Indication: Hypertension
     Dosage: 5 MILLIGRAM, QD
     Route: 048

REACTIONS (4)
  - Diabetic neuropathy [Not Recovered/Not Resolved]
  - Hypervitaminosis B [Recovering/Resolving]
  - Myalgia [Recovered/Resolved]
  - Product use issue [Unknown]
